FAERS Safety Report 9057902 (Version 1)
Quarter: 2013Q1

REPORT INFORMATION
  Report Type: Spontaneous
  Country: US (occurrence: None)
  Receive Date: 20130204
  Receipt Date: 20130204
  Transmission Date: 20140127
  Serious: Yes (Death, Life-Threatening, Hospitalization, Disabling, Congenital Anomaly, Other)
  Sender: FDA-Public Use
  Company Number: None

PATIENT
  Age: 71 Year
  Sex: Male
  Weight: 84.82 kg

DRUGS (1)
  1. FINASTERIDE [Suspect]
     Route: 048

REACTIONS (3)
  - Genital hypoaesthesia [None]
  - Erectile dysfunction [None]
  - Penile size reduced [None]
